FAERS Safety Report 8904525 (Version 1)
Quarter: 2012Q4

REPORT INFORMATION
  Report Type: 
  Country: US (occurrence: US)
  Receive Date: 20121113
  Receipt Date: 20121113
  Transmission Date: 20130627
  Serious: Yes (Hospitalization)
  Sender: FDA-Public Use
  Company Number: US-ACTELION-A-US2012-74307

PATIENT
  Age: 23 Year
  Sex: Male

DRUGS (4)
  1. TRACLEER [Suspect]
     Indication: PULMONARY ARTERIAL HYPERTENSION
     Dosage: UNK
     Route: 048
  2. SILDENAFIL [Concomitant]
  3. REMODULIN [Concomitant]
  4. COUMADIN [Concomitant]

REACTIONS (5)
  - Tuberculosis [Unknown]
  - Pyrexia [Unknown]
  - Night sweats [Unknown]
  - Infusion site erythema [Recovering/Resolving]
  - Infusion site haemorrhage [Recovering/Resolving]
